FAERS Safety Report 9669758 (Version 1)
Quarter: 2013Q4

REPORT INFORMATION
  Report Type: Spontaneous
  Country: US (occurrence: None)
  Receive Date: 20131104
  Receipt Date: 20131104
  Transmission Date: 20140711
  Serious: Yes (Hospitalization)
  Sender: FDA-Public Use
  Company Number: None

PATIENT
  Age: 50 Year
  Sex: Female
  Weight: 87.3 kg

DRUGS (4)
  1. ATENOLOL [Suspect]
     Indication: HYPERTENSION
     Dosage: 1 TABLET, QD, ORAL
     Route: 048
     Dates: start: 20131031, end: 20131031
  2. SPIRONOLACTONE [Concomitant]
  3. OMEPRAZOLE [Concomitant]
  4. IBUPROFEN [Concomitant]

REACTIONS (5)
  - Dizziness [None]
  - Nausea [None]
  - Vomiting [None]
  - Angioedema [None]
  - Gastrointestinal oedema [None]
